FAERS Safety Report 8580694-X (Version None)
Quarter: 2012Q3

REPORT INFORMATION
  Report Type: 
  Country: None (occurrence: None)
  Receive Date: 20120809
  Receipt Date: 20120731
  Transmission Date: 20120928
  Serious: No
  Sender: FDA-Public Use
  Company Number: US-BIOGENIDEC-2012BI028444

PATIENT
  Age: 37 Year
  Sex: Female

DRUGS (1)
  1. TYSABRI [Suspect]
     Indication: MULTIPLE SCLEROSIS
     Route: 042
     Dates: start: 20120730

REACTIONS (6)
  - MUSCLE TIGHTNESS [None]
  - CHEST PAIN [None]
  - DIZZINESS [None]
  - MICTURITION URGENCY [None]
  - POLLAKIURIA [None]
  - SEDATION [None]
